FAERS Safety Report 9851167 (Version 1)
Quarter: 2014Q1

REPORT INFORMATION
  Report Type: Spontaneous
  Country: US (occurrence: US)
  Receive Date: 20140128
  Receipt Date: 20140128
  Transmission Date: 20141002
  Serious: No
  Sender: FDA-Public Use
  Company Number: US-SANOFI-AVENTIS-2013SA062507

PATIENT
  Age: 84 Year
  Sex: Female

DRUGS (1)
  1. LASIX [Suspect]
     Route: 065

REACTIONS (1)
  - Abnormal behaviour [Unknown]
